FAERS Safety Report 7129068-9 (Version None)
Quarter: 2010Q4

REPORT INFORMATION
  Report Type: 
  Country: None (occurrence: None)
  Receive Date: 20101130
  Receipt Date: 20101117
  Transmission Date: 20110411
  Serious: Yes (Hospitalization, Other)
  Sender: FDA-Public Use
  Company Number: JP-B.I. PHARMACEUTICALS,INC./RIDGEFIELD-2010-DE-06249GD

PATIENT
  Age: 72 Year
  Sex: Male

DRUGS (9)
  1. MOBIC [Suspect]
     Indication: RHEUMATOID ARTHRITIS
     Dosage: 1 ANZ
  2. PREDNISOLONE [Suspect]
     Indication: RHEUMATOID ARTHRITIS
     Dosage: 1 ANZ
  3. RIMATIL [Suspect]
     Indication: RHEUMATOID ARTHRITIS
     Dosage: 2 ANZ
  4. RHEUMATREX [Suspect]
     Indication: RHEUMATOID ARTHRITIS
     Dosage: 2 ANZ
  5. WARFARIN [Suspect]
     Indication: CARDIOVASCULAR DISORDER
     Dosage: 3 ANZ
  6. ANPLAG [Suspect]
     Indication: CARDIOVASCULAR DISORDER
     Dosage: 2 ANZ
  7. CARDENALIN [Suspect]
     Indication: CARDIOVASCULAR DISORDER
     Dosage: 2 ANZ
  8. VASOLAN [Suspect]
     Indication: CARDIOVASCULAR DISORDER
     Dosage: 2 ANZ
  9. NU-LOTAN [Suspect]
     Indication: CARDIOVASCULAR DISORDER
     Dosage: 1 ANZ

REACTIONS (3)
  - CEREBRAL INFARCTION [None]
  - GASTRIC ULCER HAEMORRHAGE [None]
  - MELAENA [None]
